FAERS Safety Report 6727667-7 (Version None)
Quarter: 2010Q2

REPORT INFORMATION
  Report Type: 
  Country: None (occurrence: None)
  Receive Date: 20100517
  Receipt Date: 20100505
  Transmission Date: 20101027
  Serious: Yes (Other)
  Sender: FDA-Public Use
  Company Number: GB-ROCHE-643268

PATIENT
  Sex: Male

DRUGS (1)
  1. ISOTRETINOIN [Suspect]
     Indication: ACNE
     Route: 065
     Dates: start: 19990901, end: 20000301

REACTIONS (16)
  - ARTHRALGIA [None]
  - DRY EYE [None]
  - DRY MOUTH [None]
  - DRY SKIN [None]
  - EYE PAIN [None]
  - GENERAL PHYSICAL HEALTH DETERIORATION [None]
  - LACRIMAL DISORDER [None]
  - LIP DRY [None]
  - MEIBOMIAN GLAND DYSFUNCTION [None]
  - MYALGIA [None]
  - NASAL DRYNESS [None]
  - OCULAR HYPERAEMIA [None]
  - PAIN [None]
  - PHOTOPHOBIA [None]
  - QUALITY OF LIFE DECREASED [None]
  - SURGICAL FAILURE [None]
